FAERS Safety Report 8106313-4 (Version None)
Quarter: 2012Q1

REPORT INFORMATION
  Report Type: 
  Country: None (occurrence: None)
  Receive Date: 20120202
  Receipt Date: 20120125
  Transmission Date: 20120608
  Serious: Yes (Other)
  Sender: FDA-Public Use
  Company Number: US-CELGENEUS-163-21880-11121264

PATIENT
  Sex: Female

DRUGS (3)
  1. SYNTHROID [Concomitant]
     Dosage: 88 MICROGRAM
     Route: 048
  2. REVLIMID [Suspect]
     Dosage: 5 MILLIGRAM
     Route: 048
     Dates: start: 20060310
  3. VERAPAMIL [Concomitant]
     Dosage: 180 MILLIGRAM
     Route: 048

REACTIONS (2)
  - TYMPANIC MEMBRANE PERFORATION [None]
  - NASOPHARYNGITIS [None]
